FAERS Safety Report 12068919 (Version 1)
Quarter: 2016Q1

REPORT INFORMATION
  Report Type: Spontaneous
  Country: US (occurrence: US)
  Receive Date: 20160211
  Receipt Date: 20160211
  Transmission Date: 20160526
  Serious: Yes (Congenital Anomaly, Other)
  Sender: FDA-Public Use
  Company Number: US-APOTEX-2016AP006463

PATIENT
  Age: 1 Day
  Sex: Male
  Weight: 2 kg

DRUGS (2)
  1. PAXIL [Suspect]
     Active Substance: PAROXETINE HYDROCHLORIDE
     Indication: PRODUCT USED FOR UNKNOWN INDICATION
     Dosage: 20 MG, DAILY
     Route: 064
     Dates: end: 1999
  2. PAXIL [Suspect]
     Active Substance: PAROXETINE HYDROCHLORIDE
     Dosage: 30 MG, UNKNOWN
     Route: 064
     Dates: end: 1999

REACTIONS (7)
  - Cryptorchism [Unknown]
  - Ventricular septal defect [Unknown]
  - Cardiac murmur [Unknown]
  - Premature baby [Unknown]
  - Foetal exposure during pregnancy [Unknown]
  - Attention deficit/hyperactivity disorder [Unknown]
  - Atrial septal defect [Unknown]

NARRATIVE: CASE EVENT DATE: 19990603
